FAERS Safety Report 20677530 (Version 3)
Quarter: 2023Q1

REPORT INFORMATION
  Report Type: Report from Study
  Country: US (occurrence: US)
  Receive Date: 20220406
  Receipt Date: 20230102
  Transmission Date: 20230418
  Serious: Yes (Other)
  Sender: FDA-Public Use
  Company Number: US-NOVARTISPH-NVSC2022US076481

PATIENT
  Sex: Male

DRUGS (2)
  1. COSENTYX [Suspect]
     Active Substance: SECUKINUMAB
     Indication: Psoriasis
     Dosage: 300 MG, QMO
     Route: 065
     Dates: start: 20180219, end: 20211001
  2. COSENTYX [Suspect]
     Active Substance: SECUKINUMAB
     Dosage: UNK MG
     Route: 065
     Dates: start: 2022

REACTIONS (3)
  - Cellulitis [Unknown]
  - Psoriatic arthropathy [Unknown]
  - Plantar fasciitis [Unknown]

NARRATIVE: CASE EVENT DATE: 20210101
